FAERS Safety Report 13155808 (Version 1)
Quarter: 2017Q1

REPORT INFORMATION
  Report Type: Spontaneous
  Country: US (occurrence: US)
  Receive Date: 20170126
  Receipt Date: 20170126
  Transmission Date: 20170428
  Serious: No
  Sender: FDA-Public Use
  Company Number: US-ROCHE-1266694

PATIENT
  Sex: Male

DRUGS (22)
  1. OXYBUTYNIN [Concomitant]
     Active Substance: OXYBUTYNIN
  2. FENOFIBRATE. [Concomitant]
     Active Substance: FENOFIBRATE
  3. VALIUM [Suspect]
     Active Substance: DIAZEPAM
     Indication: PRODUCT USED FOR UNKNOWN INDICATION
     Route: 065
  4. SYNTHROID [Concomitant]
     Active Substance: LEVOTHYROXINE SODIUM
  5. MELATONIN [Concomitant]
     Active Substance: MELATONIN
     Indication: SEDATION
     Dosage: 1 TABLET AT BEDTIME
     Route: 048
     Dates: start: 20130506
  6. LYRICA [Concomitant]
     Active Substance: PREGABALIN
     Indication: NEURALGIA
     Dosage: 1 CAPSULE AT BEDTIME
     Route: 048
     Dates: start: 20130506
  7. IBUPROFEN. [Concomitant]
     Active Substance: IBUPROFEN
     Dosage: REPORTED AS LAROFEN
     Route: 065
  8. OXYCODONE [Concomitant]
     Active Substance: OXYCODONE
  9. EFFEXOR [Concomitant]
     Active Substance: VENLAFAXINE HYDROCHLORIDE
     Route: 048
  10. LYRICA [Concomitant]
     Active Substance: PREGABALIN
     Dosage: 150 MG TWICE DAILY
     Route: 048
  11. MORPHINE [Concomitant]
     Active Substance: MORPHINE
  12. DULOXETINE. [Concomitant]
     Active Substance: DULOXETINE
     Dosage: 2 CAP, 1 WEEK
     Route: 065
  13. NEPHRO-VITE [Concomitant]
     Indication: VITAMIN SUPPLEMENTATION
     Dosage: 1 TAB IN THE MORNING.
     Route: 048
     Dates: start: 20130506
  14. FERROUS SULFATE. [Concomitant]
     Active Substance: FERROUS SULFATE
  15. LASIX [Concomitant]
     Active Substance: FUROSEMIDE
     Dosage: 2 TABLETS TWICE DAILY AS NEEDED.
     Route: 065
     Dates: start: 20130506, end: 20130729
  16. LORAZEPAM. [Concomitant]
     Active Substance: LORAZEPAM
  17. KLOR-CON [Concomitant]
     Active Substance: POTASSIUM CHLORIDE
     Indication: ELECTROLYTE SUBSTITUTION THERAPY
     Dosage: 20 MEQ, 2 TABLETS AS NECESSARY.
     Route: 048
     Dates: start: 20130506, end: 20130729
  18. CARVEDILOL. [Concomitant]
     Active Substance: CARVEDILOL
     Indication: CARDIAC FAILURE
     Dosage: 2 TABLETS AT 10 AM AND 2 TABLETS AT BEDTIME
     Route: 048
     Dates: start: 20130430
  19. LACTULOSE SYRUP [Concomitant]
     Indication: CONSTIPATION
     Dosage: 20 GM/30ML BY MOUTH
     Route: 048
     Dates: start: 20130506
  20. IMDUR [Concomitant]
     Active Substance: ISOSORBIDE MONONITRATE
  21. TRAVATAN [Concomitant]
     Active Substance: TRAVOPROST
     Indication: GLAUCOMA
     Dosage: ONE DROP IN EACH EYE AT BEDTIME (10 PM), 0.004 PERCENT
     Route: 065
     Dates: start: 20130430
  22. CRESTOR [Concomitant]
     Active Substance: ROSUVASTATIN CALCIUM

REACTIONS (2)
  - Drug hypersensitivity [Unknown]
  - Blood potassium increased [Unknown]
